FAERS Safety Report 7814600-X (Version None)
Quarter: 2011Q4

REPORT INFORMATION
  Report Type: 
  Country: None (occurrence: None)
  Receive Date: 20111014
  Receipt Date: 20111005
  Transmission Date: 20120403
  Serious: Yes (Other)
  Sender: FDA-Public Use
  Company Number: US-BAYER-2011-095548

PATIENT
  Sex: Female
  Weight: 46.259 kg

DRUGS (1)
  1. MIRENA [Suspect]
     Dosage: UNK
     Dates: start: 20080101

REACTIONS (8)
  - BLOOD MAGNESIUM DECREASED [None]
  - HYPERTENSION [None]
  - AMENORRHOEA [None]
  - HEART RATE INCREASED [None]
  - PALPITATIONS [None]
  - BLOOD POTASSIUM DECREASED [None]
  - HYPERHIDROSIS [None]
  - BREAST PAIN [None]
